FAERS Safety Report 7167958-1 (Version None)
Quarter: 2010Q4

REPORT INFORMATION
  Report Type: 
  Country: None (occurrence: None)
  Receive Date: 20101216
  Receipt Date: 20101214
  Transmission Date: 20110411
  Serious: No
  Sender: FDA-Public Use
  Company Number: US-PFIZER INC-2010172546

PATIENT
  Sex: Male
  Weight: 69 kg

DRUGS (19)
  1. ZOLOFT [Suspect]
     Indication: PAIN
     Dosage: 200 MG, 1X/DAY
  2. LYRICA [Suspect]
     Indication: PAIN
     Dosage: 150 MG, 1X/DAY
     Dates: start: 20100101
  3. CELEXA [Suspect]
     Indication: PAIN
     Dates: start: 20100101
  4. LIPITOR [Concomitant]
  5. PERCOCET [Concomitant]
  6. CYMBALTA [Concomitant]
  7. VENTOLIN [Concomitant]
  8. ALLEGRA D 24 HOUR [Concomitant]
  9. LISINOPRIL [Concomitant]
     Dosage: FREQUENCY: 2X/DAY,
  10. CATAPRES [Concomitant]
     Dosage: FREQUENCY: AS NEEDED,
  11. METOPROLOL TARTRATE [Concomitant]
     Dosage: FREQUENCY: 2X/DAY,
  12. MUCINEX [Concomitant]
  13. ZANTAC [Concomitant]
     Dosage: FREQUENCY: 2X/DAY,
  14. SKELAXIN [Concomitant]
     Dosage: FREQUENCY: 2X/DAY,
  15. CLONAZEPAM [Concomitant]
     Indication: SLEEP DISORDER
     Dosage: FREQUENCY: AS NEEDED,
  16. TRANXENE [Concomitant]
     Dosage: FREQUENCY: AS NEEDED,
  17. VITAMIN D [Concomitant]
  18. FISH OIL [Concomitant]
  19. CO-ENZYME Q-10/LECITHIN/LEMON BIOFLAVONOIDS/QUERCETIN [Concomitant]

REACTIONS (5)
  - DRUG INEFFECTIVE FOR UNAPPROVED INDICATION [None]
  - DRY MOUTH [None]
  - MEMORY IMPAIRMENT [None]
  - SEDATION [None]
  - SOMNOLENCE [None]
